FAERS Safety Report 10677365 (Version 1)
Quarter: 2014Q4

REPORT INFORMATION
  Report Type: Report from Study
  Country: ES (occurrence: ES)
  Receive Date: 20141226
  Receipt Date: 20141226
  Transmission Date: 20150529
  Serious: Yes (Hospitalization)
  Sender: FDA-Public Use
  Company Number: PHHO2014ES016711

PATIENT
  Age: 46 Year
  Sex: Female

DRUGS (8)
  1. OMEPRAZOLE. [Concomitant]
     Active Substance: OMEPRAZOLE
     Indication: PROPHYLAXIS
     Dosage: 20 MG
     Route: 065
     Dates: start: 20140925
  2. DEXKETOPROFEN [Concomitant]
     Active Substance: DEXKETOPROFEN
     Indication: PAIN
     Dosage: 25/PH
     Route: 065
     Dates: start: 20140925
  3. FUROSEMIDE. [Concomitant]
     Active Substance: FUROSEMIDE
     Indication: OEDEMA
     Dosage: 40 MG, QD
     Route: 065
     Dates: start: 20140926
  4. NO TREATMENT RECEIVED [Suspect]
     Active Substance: UNSPECIFIED INGREDIENT
     Indication: LIVER TRANSPLANT
     Route: 048
  5. MYCOPHENOLATE MOFETIL. [Suspect]
     Active Substance: MYCOPHENOLATE MOFETIL
     Indication: LIVER TRANSPLANT
     Dosage: 1 MG, QD
     Route: 065
     Dates: start: 20140929
  6. DEFLAZACORTE [Suspect]
     Active Substance: DEFLAZACORT
     Indication: LIVER TRANSPLANT
     Dosage: 30 MG, QD
     Route: 065
     Dates: start: 20140925
  7. ADVAGRAF [Suspect]
     Active Substance: TACROLIMUS
     Indication: LIVER TRANSPLANT
     Dosage: 500 MG, BID
     Route: 065
     Dates: start: 20140925
  8. NISTATIN [Concomitant]
     Active Substance: NYSTATIN
     Indication: PROPHYLAXIS
     Dosage: 5 ML, BID
     Route: 065
     Dates: start: 20140925

REACTIONS (1)
  - Umbilical hernia [Recovered/Resolved]

NARRATIVE: CASE EVENT DATE: 20141004
